FAERS Safety Report 21128887 (Version 5)
Quarter: 2024Q1

REPORT INFORMATION
  Report Type: Other
  Country: GB (occurrence: None)
  Receive Date: 20220725
  Receipt Date: 20240308
  Transmission Date: 20240410
  Serious: Yes (Other)
  Sender: FDA-Public Use
  Company Number: GB-ROCHE-3144279

PATIENT
  Sex: Male

DRUGS (1)
  1. TOCILIZUMAB [Suspect]
     Active Substance: TOCILIZUMAB
     Indication: Giant cell arteritis
     Route: 058
     Dates: start: 202205

REACTIONS (5)
  - Neoplasm [Unknown]
  - Parkinson^s disease [Unknown]
  - COVID-19 [Unknown]
  - Tongue disorder [Unknown]
  - Fatigue [Unknown]
